FAERS Safety Report 16565539 (Version 1)
Quarter: 2019Q3

REPORT INFORMATION
  Report Type: Spontaneous
  Country: FR (occurrence: FR)
  Receive Date: 20190712
  Receipt Date: 20190712
  Transmission Date: 20191004
  Serious: Yes (Hospitalization)
  Sender: FDA-Public Use
  Company Number: PHHY2019FR159940

PATIENT
  Age: 16 Year
  Sex: Female
  Weight: 54 kg

DRUGS (2)
  1. IBUPROFENE [Concomitant]
     Active Substance: IBUPROFEN
     Indication: SUICIDE ATTEMPT
     Dosage: 2 G, 1 TOTAL
     Route: 048
     Dates: start: 20190603, end: 20190603
  2. PARACETAMOL [Suspect]
     Active Substance: ACETAMINOPHEN
     Indication: SUICIDE ATTEMPT
     Dosage: 8 G, 1 TOTAL
     Route: 048
     Dates: start: 20190603, end: 20190603

REACTIONS (2)
  - Toxicity to various agents [Recovered/Resolved]
  - Analgesic drug level increased [Recovered/Resolved]

NARRATIVE: CASE EVENT DATE: 20190603
